FAERS Safety Report 19265286 (Version 1)
Quarter: 2021Q2

REPORT INFORMATION
  Report Type: Spontaneous
  Country: US (occurrence: US)
  Receive Date: 20210517
  Receipt Date: 20210517
  Transmission Date: 20210717
  Serious: No
  Sender: FDA-Public Use
  Company Number: US-SA-2021SA158162

PATIENT
  Age: 57 Year
  Sex: Female

DRUGS (1)
  1. ENOXAPARIN SODIUM ? WINTHROP [Suspect]
     Active Substance: ENOXAPARIN SODIUM
     Dosage: 150 MG, QD

REACTIONS (2)
  - Needle issue [Unknown]
  - Product dose omission issue [Unknown]

NARRATIVE: CASE EVENT DATE: 20210507
